FAERS Safety Report 23614847 (Version 3)
Quarter: 2024Q3

REPORT INFORMATION
  Report Type: Report from Study
  Country: CA (occurrence: CA)
  Receive Date: 20240311
  Receipt Date: 20240809
  Transmission Date: 20241016
  Serious: Yes (Hospitalization, Other)
  Sender: JOHNSON AND JOHNSON
  Company Number: CA-JNJFOC-20240110852

PATIENT
  Age: 45 Year
  Sex: Female
  Weight: 113 kg

DRUGS (14)
  1. REMICADE [Suspect]
     Active Substance: INFLIXIMAB
     Indication: Crohn^s disease
     Dosage: START DATE ALSO REPORTED AS 12-OCT-2022
     Route: 041
     Dates: start: 20180829, end: 20240102
  2. REMICADE [Suspect]
     Active Substance: INFLIXIMAB
     Route: 041
     Dates: start: 20240102, end: 20240102
  3. RENFLEXIS [Suspect]
     Active Substance: INFLIXIMAB-ABDA
     Indication: Crohn^s disease
     Route: 065
     Dates: start: 202401
  4. RENFLEXIS [Suspect]
     Active Substance: INFLIXIMAB-ABDA
     Route: 065
     Dates: start: 20240221, end: 20240318
  5. RAMIPRIL [Concomitant]
     Active Substance: RAMIPRIL
  6. RAMIPRIL [Concomitant]
     Active Substance: RAMIPRIL
  7. LYRICA [Concomitant]
     Active Substance: PREGABALIN
     Indication: Pain
  8. ZOLOFT [Concomitant]
     Active Substance: SERTRALINE HYDROCHLORIDE
     Indication: Anxiety
  9. CLONAZEPAM [Concomitant]
     Active Substance: CLONAZEPAM
     Dosage: AS REQUIRED
  10. BACLOFEN [Concomitant]
     Active Substance: BACLOFEN
     Dosage: AS REQUIRED
  11. WELLBUTRIN [Concomitant]
     Active Substance: BUPROPION HYDROCHLORIDE
     Indication: Anxiety
  12. WELLBUTRIN [Concomitant]
     Active Substance: BUPROPION HYDROCHLORIDE
  13. LIRAGLUTIDE [Concomitant]
     Active Substance: LIRAGLUTIDE
  14. SAXENDA [Concomitant]
     Active Substance: LIRAGLUTIDE

REACTIONS (4)
  - Myocardial infarction [Recovered/Resolved]
  - Diabetes mellitus [Recovered/Resolved]
  - COVID-19 [Recovering/Resolving]
  - Ear infection [Recovering/Resolving]

NARRATIVE: CASE EVENT DATE: 20231208
